FAERS Safety Report 8259102-4 (Version None)
Quarter: 2012Q2

REPORT INFORMATION
  Report Type: 
  Country: None (occurrence: None)
  Receive Date: 20120404
  Receipt Date: 20120327
  Transmission Date: 20120825
  Serious: Yes (Other)
  Sender: FDA-Public Use
  Company Number: US-JNJFOC-20120212637

PATIENT
  Sex: Male
  Weight: 89.81 kg

DRUGS (6)
  1. NUCYNTA ER [Suspect]
     Indication: BACK PAIN
     Dosage: TWICE A DAY
     Route: 048
     Dates: start: 20120222
  2. NUCYNTA ER [Suspect]
     Indication: BACK PAIN
     Dosage: ONCE EVERY 6 HOURS
     Route: 048
     Dates: start: 20120222
  3. DURAGESIC-100 [Suspect]
     Indication: BACK PAIN
     Dosage: 1 IN 72HRS
     Route: 062
     Dates: start: 20111101, end: 20120222
  4. NUCYNTA ER [Suspect]
     Indication: INTERVERTEBRAL DISC PROTRUSION
     Dosage: TWICE A DAY
     Route: 048
     Dates: start: 20120222
  5. DURAGESIC-100 [Suspect]
     Indication: INTERVERTEBRAL DISC PROTRUSION
     Dosage: 1 IN 72HRS
     Route: 062
     Dates: start: 20111101, end: 20120222
  6. NUCYNTA ER [Suspect]
     Indication: INTERVERTEBRAL DISC PROTRUSION
     Dosage: ONCE EVERY 6 HOURS
     Route: 048
     Dates: start: 20120222

REACTIONS (3)
  - WITHDRAWAL SYNDROME [None]
  - SEROTONIN SYNDROME [None]
  - DRUG INEFFECTIVE [None]
